FAERS Safety Report 8647563 (Version 2)
Quarter: 2013Q4

REPORT INFORMATION
  Report Type: Spontaneous
  Country: US (occurrence: US)
  Receive Date: 20120703
  Receipt Date: 20131021
  Transmission Date: 20140711
  Serious: Yes (Hospitalization)
  Sender: FDA-Public Use
  Company Number: US-BAYER-2012-064661

PATIENT
  Age: 31 Year
  Sex: Female
  Weight: 113.33 kg

DRUGS (15)
  1. GIANVI [Suspect]
     Indication: CONTRACEPTION
     Dosage: UNK
     Dates: start: 20110114
  2. OCELLA [Suspect]
  3. EFFEXOR [Concomitant]
     Indication: IRRITABLE BOWEL SYNDROME
     Dosage: UNK
     Dates: start: 2003, end: 2012
  4. MEDROL [Concomitant]
  5. PROMETHAZINE [Concomitant]
     Dosage: 25 MG, UNK
     Dates: start: 20111223
  6. FLONASE [Concomitant]
     Dosage: 50 MCG, 2 SPRAYS EACH NOSTRIL
     Dates: start: 20120112
  7. NAPROSYN [Concomitant]
     Dosage: 500 MG, UNK
     Dates: start: 20120208
  8. METHYLPREDNISOLONE [Concomitant]
     Dosage: 4 MG, UNK
     Dates: start: 20120208
  9. FLEXERIL [Concomitant]
     Dosage: 10 MG, TID
  10. VENLAFAXINE [Concomitant]
     Dosage: 75 MG, UNK
     Dates: start: 20120216
  11. ULTRAM [Concomitant]
     Dosage: 50 MG, 1 TABLET EVERY 6 HOURS
     Dates: start: 20120224
  12. NAPROXEN [Concomitant]
     Indication: DYSMENORRHOEA
  13. ZYRTEC [Concomitant]
     Indication: MULTIPLE ALLERGIES
     Dosage: 1 PILL DAILY
  14. EXCEDRIN [CAFFEINE,PARACETAMOL] [Concomitant]
     Indication: HEADACHE
     Dosage: 1 WEEK
  15. ZARAH [Suspect]
     Dosage: UNK
     Dates: start: 20101123, end: 20101222

REACTIONS (5)
  - Pulmonary embolism [Recovering/Resolving]
  - Deep vein thrombosis [Recovering/Resolving]
  - Syncope [None]
  - Injury [Recovering/Resolving]
  - Pain in extremity [Recovering/Resolving]
